FAERS Safety Report 5025928-3 (Version None)
Quarter: 2006Q2

REPORT INFORMATION
  Report Type: 
  Country: None (occurrence: None)
  Receive Date: 20060614
  Receipt Date: 20060509
  Transmission Date: 20061013
  Serious: Yes (Other)
  Sender: FDA-Public Use
  Company Number: GB-GLAXOSMITHKLINE-B0423080A

PATIENT
  Age: 19 Month
  Sex: Male

DRUGS (1)
  1. MALARONE [Suspect]
     Indication: MALARIA PROPHYLAXIS
     Route: 048
     Dates: start: 20060323, end: 20060427

REACTIONS (7)
  - ACCIDENTAL OVERDOSE [None]
  - APHTHOUS STOMATITIS [None]
  - BLOOD UREA INCREASED [None]
  - DIARRHOEA [None]
  - GINGIVITIS [None]
  - MALAISE [None]
  - VOMITING [None]
